FAERS Safety Report 8525870-7 (Version None)
Quarter: 2012Q3

REPORT INFORMATION
  Report Type: 
  Country: None (occurrence: None)
  Receive Date: 20120720
  Receipt Date: 20120716
  Transmission Date: 20120928
  Serious: Yes (Death, Other)
  Sender: FDA-Public Use
  Company Number: PHHY2012JP060675

PATIENT
  Age: 54 Year
  Sex: Female

DRUGS (5)
  1. PREDNISOLONE [Suspect]
     Indication: INTERSTITIAL LUNG DISEASE
     Dosage: 1 MG/KG, PER DAY
  2. CYCLOSPORINE [Suspect]
     Indication: INTERSTITIAL LUNG DISEASE
     Dosage: 0.17 MG/KG, PER HOUR
     Route: 042
  3. METHYLPREDNISOLONE [Suspect]
     Indication: INTERSTITIAL LUNG DISEASE
  4. IMMUNE GLOBULIN NOS [Concomitant]
  5. CYCLOPHOSPHAMIDE [Suspect]
     Indication: INTERSTITIAL LUNG DISEASE
     Route: 042

REACTIONS (5)
  - DISEASE PROGRESSION [None]
  - INTERSTITIAL LUNG DISEASE [None]
  - IMMUNOSUPPRESSANT DRUG LEVEL INCREASED [None]
  - RENAL IMPAIRMENT [None]
  - RESPIRATORY FAILURE [None]
